FAERS Safety Report 12138560 (Version 1)
Quarter: 2016Q1

REPORT INFORMATION
  Report Type: Spontaneous
  Country: US (occurrence: US)
  Receive Date: 20160302
  Receipt Date: 20160302
  Transmission Date: 20160526
  Serious: Yes (Hospitalization, Other)
  Sender: FDA-Public Use
  Company Number: US-PFIZER INC-2016122740

PATIENT
  Age: 58 Year
  Sex: Female
  Weight: 67 kg

DRUGS (1)
  1. RELPAX [Suspect]
     Active Substance: ELETRIPTAN HYDROBROMIDE
     Indication: MIGRAINE
     Dosage: 40 MG, UNK
     Route: 048

REACTIONS (13)
  - Migraine [Unknown]
  - Vomiting [Unknown]
  - Condition aggravated [Unknown]
  - Food interaction [Not Recovered/Not Resolved]
  - Asthenia [Unknown]
  - Dyspnoea [Unknown]
  - Movement disorder [Unknown]
  - Overweight [Not Recovered/Not Resolved]
  - Drug ineffective [Not Recovered/Not Resolved]
  - Malaise [Unknown]
  - Abasia [Unknown]
  - Gastric disorder [Unknown]
  - Atrial fibrillation [Not Recovered/Not Resolved]
